FAERS Safety Report 4589950-3 (Version None)
Quarter: 2005Q1

REPORT INFORMATION
  Report Type: 
  Country: None (occurrence: None)
  Receive Date: 20050125
  Receipt Date: 20040913
  Transmission Date: 20050727
  Serious: Yes (Other)
  Sender: FDA-Public Use
  Company Number: USA040771657

PATIENT
  Age: 61 Year
  Sex: Female
  Weight: 86 kg

DRUGS (5)
  1. HUMULIN R [Suspect]
     Dates: start: 19940701
  2. FORTEO [Suspect]
     Indication: OSTEOPOROSIS
     Dosage: 20 UG DAY
     Dates: start: 20040630
  3. HUMULIN N [Suspect]
     Dosage: 70 U DAY
     Dates: start: 20040701
  4. MULTIVITAMIN NOS (MULTIVITAMINS NOS) [Concomitant]
  5. PREDNISONE [Concomitant]

REACTIONS (12)
  - ARTHRALGIA [None]
  - BACK INJURY [None]
  - CATARACT [None]
  - CHEST WALL PAIN [None]
  - EYE HAEMORRHAGE [None]
  - MOBILITY DECREASED [None]
  - MUSCLE TIGHTNESS [None]
  - MUSCLE TWITCHING [None]
  - OEDEMA PERIPHERAL [None]
  - OSTEOPOROSIS [None]
  - SPINAL FRACTURE [None]
  - VISUAL ACUITY REDUCED [None]
